FAERS Safety Report 7771354-3 (Version None)
Quarter: 2011Q3

REPORT INFORMATION
  Report Type: 
  Country: None (occurrence: None)
  Receive Date: 20110922
  Receipt Date: 20110912
  Transmission Date: 20111222
  Serious: Yes (Other)
  Sender: FDA-Public Use
  Company Number: US-JNJFOC-20110608802

PATIENT
  Sex: Female
  Weight: 83.92 kg

DRUGS (2)
  1. REMICADE [Suspect]
     Indication: COLITIS ULCERATIVE
     Route: 042
  2. REMICADE [Suspect]
     Route: 042

REACTIONS (10)
  - BLOOD URINE PRESENT [None]
  - RETCHING [None]
  - PROTEIN URINE PRESENT [None]
  - DRUG INEFFECTIVE [None]
  - ANTINUCLEAR ANTIBODY POSITIVE [None]
  - SINUSITIS [None]
  - BODY TEMPERATURE INCREASED [None]
  - PRURITUS [None]
  - CHEST PAIN [None]
  - PAIN [None]
